FAERS Safety Report 6073950-0 (Version None)
Quarter: 2009Q1

REPORT INFORMATION
  Report Type: 
  Country: None (occurrence: None)
  Receive Date: 20090211
  Receipt Date: 20090204
  Transmission Date: 20090719
  Serious: Yes (Hospitalization)
  Sender: FDA-Public Use
  Company Number: PHEH2009US01424

PATIENT
  Sex: Female

DRUGS (8)
  1. DIOVAN [Suspect]
     Indication: HYPERTENSION
     Dosage: 160 MG, UNK
  2. DIOVAN [Suspect]
     Dosage: 80 MG, UNK
  3. TRIAMTERENE AND HYDROCHLOROTHIAZID ^HARRIS^ [Concomitant]
  4. FLEXERIL [Concomitant]
  5. SPIRIVA [Concomitant]
  6. MOBIC [Concomitant]
     Dosage: UNK
  7. PREDNISONE [Concomitant]
  8. NEXIUM [Concomitant]

REACTIONS (6)
  - ASPIRATION BRONCHIAL [None]
  - BRONCHITIS CHRONIC [None]
  - CARDIAC DISORDER [None]
  - COUGH [None]
  - DYSPNOEA [None]
  - LOSS OF CONSCIOUSNESS [None]
